FAERS Safety Report 23139456 (Version 2)
Quarter: 2023Q4

REPORT INFORMATION
  Report Type: Spontaneous
  Country: US (occurrence: US)
  Receive Date: 20231102
  Receipt Date: 20231215
  Transmission Date: 20240109
  Serious: No
  Sender: FDA-Public Use
  Company Number: US-BAYER-2023A155175

PATIENT
  Age: 54 Year

DRUGS (2)
  1. ASTEPRO [Suspect]
     Active Substance: AZELASTINE HYDROCHLORIDE
     Dosage: UNK
     Route: 045
     Dates: start: 202303
  2. ASTEPRO [Suspect]
     Active Substance: AZELASTINE HYDROCHLORIDE
     Dosage: UNK
     Route: 045
     Dates: start: 202310

REACTIONS (4)
  - Allergic reaction to excipient [Unknown]
  - Rash [Recovered/Resolved]
  - Skin exfoliation [Unknown]
  - Rash [None]

NARRATIVE: CASE EVENT DATE: 20230401
